FAERS Safety Report 14320230 (Version 1)
Quarter: 2017Q4

REPORT INFORMATION
  Report Type: Spontaneous
  Country: US (occurrence: US)
  Receive Date: 20171222
  Receipt Date: 20171222
  Transmission Date: 20180321
  Serious: Yes (Hospitalization, Other)
  Sender: FDA-Public Use
  Company Number: US-JAZZ-2017-US-016799

PATIENT
  Age: 51 Year
  Sex: Male
  Weight: 83.9 kg

DRUGS (54)
  1. BUPIVACAINE. [Suspect]
     Active Substance: BUPIVACAINE
     Dosage: 0.696 MG, QH
     Route: 037
     Dates: start: 20170920, end: 20171120
  2. LYRICA [Suspect]
     Active Substance: PREGABALIN
     Dosage: UNK
     Dates: start: 20160926
  3. DIAZEPAM. [Concomitant]
     Active Substance: DIAZEPAM
     Indication: PAIN
     Dosage: UNK
     Dates: start: 20151208
  4. DILAUDID [Concomitant]
     Active Substance: HYDROMORPHONE HYDROCHLORIDE
     Dosage: UNK
     Dates: start: 20150629
  5. NALTREXONE [Concomitant]
     Active Substance: NALTREXONE
     Indication: PAIN
     Dosage: UNK
     Dates: start: 20160919
  6. CYMBALTA [Concomitant]
     Active Substance: DULOXETINE HYDROCHLORIDE
     Indication: PRODUCT USED FOR UNKNOWN INDICATION
     Dosage: UNK
     Dates: start: 20160408
  7. ROCEPHIN [Concomitant]
     Active Substance: CEFTRIAXONE SODIUM
     Indication: PRODUCT USED FOR UNKNOWN INDICATION
     Dosage: UNK
     Dates: start: 201609
  8. ZOMETA [Concomitant]
     Active Substance: ZOLEDRONIC ACID
     Indication: PRODUCT USED FOR UNKNOWN INDICATION
  9. BACLOFEN. [Suspect]
     Active Substance: BACLOFEN
     Dosage: 22.27 ?G, QH
     Route: 037
     Dates: start: 20170920, end: 20171120
  10. BUPIVACAINE. [Suspect]
     Active Substance: BUPIVACAINE
     Dosage: 0.455 MG, QH
     Route: 037
     Dates: start: 20171120
  11. METHADONE [Suspect]
     Active Substance: METHADONE HYDROCHLORIDE
     Indication: PAIN
     Dosage: UNK
     Route: 048
     Dates: start: 20150211
  12. DILAUDID [Concomitant]
     Active Substance: HYDROMORPHONE HYDROCHLORIDE
     Dosage: UNK
     Dates: start: 20150630
  13. NALTREXONE [Concomitant]
     Active Substance: NALTREXONE
     Dosage: UNK
     Dates: start: 20170315
  14. CANNABIDIOL [Concomitant]
     Active Substance: CANNABIDIOL
     Indication: PRODUCT USED FOR UNKNOWN INDICATION
     Dosage: UNK
     Dates: start: 2016
  15. BACLOFEN. [Suspect]
     Active Substance: BACLOFEN
     Indication: PAIN
     Dosage: 14.57 ?G, QH
     Route: 037
     Dates: start: 20170524
  16. CLONIDINE. [Suspect]
     Active Substance: CLONIDINE
     Dosage: 11.13 ?G, QH
     Route: 037
     Dates: start: 20170920, end: 20171120
  17. CLONIDINE. [Suspect]
     Active Substance: CLONIDINE
     Dosage: 7.285 ?G, QH
     Route: 037
     Dates: start: 20171120
  18. LYRICA [Suspect]
     Active Substance: PREGABALIN
     Indication: PAIN
     Dosage: UNK
     Route: 048
     Dates: start: 20141111
  19. LYRICA [Suspect]
     Active Substance: PREGABALIN
     Dosage: 200 MG, QD
     Route: 048
     Dates: start: 20160426
  20. LYRICA [Suspect]
     Active Substance: PREGABALIN
     Dosage: UNK
     Dates: start: 20170425
  21. LYRICA [Suspect]
     Active Substance: PREGABALIN
     Dosage: UNK
     Dates: start: 20171120
  22. VENLAFAXINE [Concomitant]
     Active Substance: VENLAFAXINE HYDROCHLORIDE
     Dosage: UNK
     Dates: start: 20150810
  23. CLONIDINE. [Suspect]
     Active Substance: CLONIDINE
     Indication: COMPLEX REGIONAL PAIN SYNDROME
     Dosage: 10.95 ?G, QH
     Route: 037
     Dates: start: 20170524, end: 20170725
  24. BUPIVACAINE. [Suspect]
     Active Substance: BUPIVACAINE
     Dosage: 0.71 MG, QH
     Route: 037
     Dates: start: 20170725, end: 20170920
  25. LYRICA [Suspect]
     Active Substance: PREGABALIN
     Dosage: UNK
     Route: 048
     Dates: start: 20141201
  26. FENTANYL. [Suspect]
     Active Substance: FENTANYL
     Dosage: UNK ?G, QH
     Route: 037
     Dates: start: 20151021, end: 20160310
  27. DILAUDID [Concomitant]
     Active Substance: HYDROMORPHONE HYDROCHLORIDE
     Dosage: UNK
     Dates: start: 20150302
  28. VENLAFAXINE [Concomitant]
     Active Substance: VENLAFAXINE HYDROCHLORIDE
     Dosage: UNK
     Dates: start: 20160229
  29. LIDOCAINE. [Concomitant]
     Active Substance: LIDOCAINE
     Indication: PRODUCT USED FOR UNKNOWN INDICATION
  30. CLONIDINE. [Suspect]
     Active Substance: CLONIDINE
     Indication: PAIN
     Dosage: 7.285 ?G, QH
     Route: 037
     Dates: start: 20170524
  31. BUPIVACAINE. [Suspect]
     Active Substance: BUPIVACAINE
     Indication: PAIN
     Dosage: 0.455 MG, QH
     Route: 037
     Dates: start: 20170524
  32. METHADONE [Suspect]
     Active Substance: METHADONE HYDROCHLORIDE
     Dosage: UNK
     Route: 048
     Dates: start: 20150716
  33. LYRICA [Suspect]
     Active Substance: PREGABALIN
     Dosage: UNK
     Route: 048
     Dates: start: 20160126
  34. LYRICA [Suspect]
     Active Substance: PREGABALIN
     Dosage: 300 MG, QD
     Route: 048
     Dates: start: 20160426
  35. VENLAFAXINE [Concomitant]
     Active Substance: VENLAFAXINE HYDROCHLORIDE
     Indication: PAIN
     Dosage: UNK
     Dates: start: 20140915
  36. VENLAFAXINE [Concomitant]
     Active Substance: VENLAFAXINE HYDROCHLORIDE
     Dosage: UNK
     Dates: start: 20150512
  37. MAGNESIUM [Concomitant]
     Active Substance: MAGNESIUM
     Indication: PRODUCT USED FOR UNKNOWN INDICATION
  38. BACLOFEN. [Suspect]
     Active Substance: BACLOFEN
     Indication: PAIN
     Dosage: 22.72 ?G, QH
     Route: 037
     Dates: start: 20170725, end: 20170920
  39. BACLOFEN. [Suspect]
     Active Substance: BACLOFEN
     Dosage: 14.57 ?G, QH
     Route: 037
     Dates: start: 20171120
  40. BUPIVACAINE. [Suspect]
     Active Substance: BUPIVACAINE
     Dosage: 0.68 MG, QH
     Route: 037
     Dates: start: 20170524, end: 20170725
  41. METHADONE [Suspect]
     Active Substance: METHADONE HYDROCHLORIDE
     Dosage: UNK
     Route: 048
     Dates: start: 20150512
  42. FENTANYL. [Suspect]
     Active Substance: FENTANYL
     Indication: PAIN
     Dosage: UNK
     Route: 062
     Dates: start: 20150211, end: 201709
  43. DIAZEPAM. [Concomitant]
     Active Substance: DIAZEPAM
     Dosage: 2 MG, UNK
     Route: 048
     Dates: start: 20160229
  44. DILAUDID [Concomitant]
     Active Substance: HYDROMORPHONE HYDROCHLORIDE
     Indication: PAIN
     Dosage: UNK
     Dates: start: 20150129
  45. VENLAFAXINE [Concomitant]
     Active Substance: VENLAFAXINE HYDROCHLORIDE
     Dosage: UNK
     Dates: start: 20151208
  46. PRIALT [Suspect]
     Active Substance: ZICONOTIDE ACETATE
     Indication: PAIN
     Dosage: UNK ?G, QH
     Route: 037
  47. PRIALT [Suspect]
     Active Substance: ZICONOTIDE ACETATE
     Indication: COMPLEX REGIONAL PAIN SYNDROME
  48. CLONIDINE. [Suspect]
     Active Substance: CLONIDINE
     Dosage: 11.36 ?G, QH
     Route: 037
     Dates: start: 20170725, end: 20170920
  49. LYRICA [Suspect]
     Active Substance: PREGABALIN
     Dosage: UNK
     Route: 048
     Dates: start: 20151123
  50. NALTREXONE [Concomitant]
     Active Substance: NALTREXONE
     Dosage: UNK
     Dates: start: 20170912
  51. ZANAFLEX [Concomitant]
     Active Substance: TIZANIDINE HYDROCHLORIDE
     Indication: PAIN
     Dosage: UNK
     Dates: start: 20150805
  52. BACLOFEN. [Suspect]
     Active Substance: BACLOFEN
     Indication: COMPLEX REGIONAL PAIN SYNDROME
     Dosage: 21.90 ?G, QH
     Route: 037
     Dates: start: 20170524, end: 20170725
  53. MORPHINE SULPHATE [Suspect]
     Active Substance: MORPHINE SULFATE
     Indication: PRODUCT USED FOR UNKNOWN INDICATION
     Route: 048
  54. TRAMADOL. [Concomitant]
     Active Substance: TRAMADOL
     Indication: PRODUCT USED FOR UNKNOWN INDICATION
     Dosage: UNK
     Dates: start: 20160408

REACTIONS (23)
  - Withdrawal syndrome [Not Recovered/Not Resolved]
  - Hyperaesthesia [Recovering/Resolving]
  - Abdominal pain upper [Not Recovered/Not Resolved]
  - Lyme disease [Not Recovered/Not Resolved]
  - Suicide attempt [Unknown]
  - Skin discolouration [Unknown]
  - Osteoporosis [Not Recovered/Not Resolved]
  - Intentional overdose [Not Recovered/Not Resolved]
  - Nausea [Unknown]
  - Device issue [Unknown]
  - Back pain [Not Recovered/Not Resolved]
  - Muscle atrophy [Not Recovered/Not Resolved]
  - Pain in extremity [Not Recovered/Not Resolved]
  - Hallucination [Not Recovered/Not Resolved]
  - Neck pain [Unknown]
  - Muscle spasms [Not Recovered/Not Resolved]
  - Musculoskeletal stiffness [Unknown]
  - Insomnia [Unknown]
  - Pain [Recovered/Resolved]
  - Decubitus ulcer [Not Recovered/Not Resolved]
  - Depression [Not Recovered/Not Resolved]
  - Drug intolerance [Not Recovered/Not Resolved]
  - Burning sensation [Unknown]

NARRATIVE: CASE EVENT DATE: 201708
